FAERS Safety Report 15434794 (Version 1)
Quarter: 2018Q3

REPORT INFORMATION
  Report Type: Spontaneous
  Country: DE (occurrence: DE)
  Receive Date: 20180927
  Receipt Date: 20180927
  Transmission Date: 20181010
  Serious: Yes (Hospitalization, Other)
  Sender: FDA-Public Use
  Company Number: DE-JNJFOC-20180701143

PATIENT
  Age: 68 Year
  Sex: Male
  Weight: 97 kg

DRUGS (17)
  1. UTROGEST [Concomitant]
     Active Substance: PROGESTERONE
     Route: 065
  2. OPIUM TINCTURE [Concomitant]
     Active Substance: MORPHINE
     Route: 065
  3. CLEXANE [Concomitant]
     Active Substance: ENOXAPARIN SODIUM
     Route: 065
     Dates: start: 20180705, end: 20180712
  4. XARELTO [Suspect]
     Active Substance: RIVAROXABAN
     Indication: PRODUCT USED FOR UNKNOWN INDICATION
     Route: 048
     Dates: start: 20180713
  5. SINGULAIR [Concomitant]
     Active Substance: MONTELUKAST SODIUM
     Route: 065
  6. NORTASE [Concomitant]
     Route: 065
  7. DOCOSAHEXANOIC ACID [Concomitant]
     Active Substance: DOCONEXENT
     Route: 065
  8. XARELTO [Suspect]
     Active Substance: RIVAROXABAN
     Indication: PRODUCT USED FOR UNKNOWN INDICATION
     Route: 048
     Dates: start: 20180723
  9. ZINC. [Concomitant]
     Active Substance: ZINC
     Route: 065
  10. PROCAINE HYDROCHLORIDE [Concomitant]
     Active Substance: PROCAINE HYDROCHLORIDE
     Indication: NEURALGIA
     Route: 065
  11. VITAMIN?A [Concomitant]
     Active Substance: VITAMIN A
     Route: 065
  12. ALPHA?LIPON [Concomitant]
     Active Substance: THIOCTIC ACID
     Dosage: AT BED TIME (HOURS OF SLEEP)
     Route: 065
  13. XARELTO [Suspect]
     Active Substance: RIVAROXABAN
     Indication: PRODUCT USED FOR UNKNOWN INDICATION
     Route: 048
     Dates: start: 20180101
  14. DEKRISTOL [Concomitant]
     Active Substance: CHOLECALCIFEROL
     Route: 065
  15. LOPEDIUM [Concomitant]
     Active Substance: LOPERAMIDE
     Route: 065
  16. DHEA [Concomitant]
     Active Substance: PRASTERONE
     Route: 065
  17. BIOTIN [Concomitant]
     Active Substance: BIOTIN
     Route: 065

REACTIONS (6)
  - Haematoma [Recovered/Resolved]
  - Swelling [Recovered/Resolved]
  - Incision site haemorrhage [Recovered/Resolved]
  - Drain site complication [Recovered/Resolved]
  - Haematoma [Recovered/Resolved]
  - Seroma [Recovered/Resolved]

NARRATIVE: CASE EVENT DATE: 201806
